FAERS Safety Report 9788779 (Version 2)
Quarter: 2014Q2

REPORT INFORMATION
  Report Type: Spontaneous
  Country: US (occurrence: US)
  Receive Date: 20131230
  Receipt Date: 20140403
  Transmission Date: 20141212
  Serious: Yes (Hospitalization)
  Sender: FDA-Public Use
  Company Number: US-B.I. PHARMACEUTICALS,INC./RIDGEFIELD-2013-BI-43726BP

PATIENT
  Sex: Female
  Weight: 77.11 kg

DRUGS (19)
  1. PRADAXA [Suspect]
     Indication: ATRIAL FIBRILLATION
     Dosage: 300 MG
     Route: 048
     Dates: start: 201106
  2. LIDOCAINE PLUS MAALOX [Concomitant]
     Route: 065
  3. CLARITIN D [Concomitant]
     Route: 065
  4. BENADRYL [Concomitant]
     Route: 065
  5. LORTAB [Concomitant]
     Route: 065
  6. LACTULOSE [Concomitant]
     Route: 065
  7. ZOFRAN [Concomitant]
     Route: 048
  8. BETA-CAROTENE [Concomitant]
     Route: 065
  9. VITAMIN C [Concomitant]
     Route: 065
  10. VITAMIN E [Concomitant]
     Route: 065
  11. DIGOXIN [Concomitant]
     Dosage: 0.125 MG
     Route: 065
  12. COREG [Concomitant]
     Dosage: 6.25 MG
     Route: 065
  13. METFORMIN [Concomitant]
     Dosage: 1000 MG
     Route: 065
  14. COLACE [Concomitant]
     Route: 065
  15. MULTIVITAMIN [Concomitant]
     Route: 065
  16. NORVASC [Concomitant]
     Dosage: 5 MG
     Route: 065
  17. HYDROCHLOROTHIAZIDE/TRIAMTERENE [Concomitant]
     Route: 048
     Dates: start: 2005
  18. POTASSIUM CHLORIDE [Concomitant]
     Dosage: 10 MEQ
     Route: 065
  19. LOSARTAN [Concomitant]
     Dosage: 100 MG
     Route: 065

REACTIONS (4)
  - Gastric perforation [Unknown]
  - Gastrointestinal necrosis [Unknown]
  - Haemorrhagic anaemia [Unknown]
  - Inflammation [Unknown]
